FAERS Safety Report 24792087 (Version 2)
Quarter: 2025Q1

REPORT INFORMATION
  Report Type: Spontaneous
  Country: GR (occurrence: GR)
  Receive Date: 20241231
  Receipt Date: 20250107
  Transmission Date: 20250409
  Serious: Yes (Other)
  Sender: SANDOZ
  Company Number: GR-ABBVIE-6061551

PATIENT
  Age: 52 Year
  Sex: Male

DRUGS (1)
  1. ADALIMUMAB [Suspect]
     Active Substance: ADALIMUMAB
     Indication: Crohn^s disease
     Route: 058

REACTIONS (7)
  - Seizure [Recovered/Resolved]
  - Cardiac aneurysm [Recovered/Resolved]
  - Cerebral haemorrhage [Recovered/Resolved]
  - Ischaemic cerebral infarction [Recovered/Resolved]
  - Antiphospholipid syndrome [Unknown]
  - Facial paresis [Recovered/Resolved]
  - Aphasia [Recovered/Resolved]
